FAERS Safety Report 17843310 (Version 1)
Quarter: 2020Q2

REPORT INFORMATION
  Report Type: Spontaneous
  Country: DK (occurrence: DK)
  Receive Date: 20200530
  Receipt Date: 20200530
  Transmission Date: 20200714
  Serious: Yes (Hospitalization)
  Sender: FDA-Public Use
  Company Number: DK-ACCORD-183558

PATIENT
  Age: 36 Year
  Sex: Male
  Weight: 95 kg

DRUGS (2)
  1. QUETIAPINE ACCORD [Suspect]
     Active Substance: QUETIAPINE
     Indication: SCHIZOPHRENIA
     Dosage: STRENGTH: 300 MG.
     Route: 048
     Dates: start: 20150825, end: 20200504
  2. XEPLION [Suspect]
     Active Substance: PALIPERIDONE PALMITATE
     Indication: SCHIZOPHRENIA
     Dosage: STRENGTH: 75 MG
     Route: 030
     Dates: start: 20190916, end: 20200501

REACTIONS (5)
  - Diabetes mellitus [Not Recovered/Not Resolved]
  - Hyperglycaemia [Unknown]
  - Ketosis [Unknown]
  - Dehydration [Unknown]
  - Hypertriglyceridaemia [Recovering/Resolving]

NARRATIVE: CASE EVENT DATE: 202004
